FAERS Safety Report 8276141-8 (Version None)
Quarter: 2012Q2

REPORT INFORMATION
  Report Type: 
  Country: None (occurrence: None)
  Receive Date: 20120412
  Receipt Date: 20120405
  Transmission Date: 20120825
  Serious: Yes (Hospitalization, Other)
  Sender: FDA-Public Use
  Company Number: AU-B.I. PHARMACEUTICALS,INC./RIDGEFIELD-2012-AU-00414AU

PATIENT
  Sex: Male

DRUGS (5)
  1. SOTALOL HCL [Concomitant]
     Dosage: 80 MG
     Dates: start: 20110101
  2. IRBESARTAN [Concomitant]
     Dosage: 150 MG
     Dates: start: 20080101
  3. PRADAXA [Suspect]
     Indication: CEREBROVASCULAR ACCIDENT PROPHYLAXIS
     Dosage: 300 MG
     Dates: start: 20110622, end: 20120223
  4. PRADAXA [Suspect]
     Indication: ATRIAL FIBRILLATION
  5. CRESTOR [Concomitant]
     Dosage: 10 MG
     Dates: start: 20110101

REACTIONS (1)
  - DEEP VEIN THROMBOSIS [None]
